FAERS Safety Report 5677184-0 (Version None)
Quarter: 2008Q1

REPORT INFORMATION
  Report Type: 
  Country: None (occurrence: None)
  Receive Date: 20080324
  Receipt Date: 20080314
  Transmission Date: 20080703
  Serious: Yes (Other)
  Sender: FDA-Public Use
  Company Number: FR-ALLERGAN-0802768US

PATIENT
  Sex: Female

DRUGS (2)
  1. GANFORT [Suspect]
     Indication: OCULAR HYPERTENSION
     Route: 047
  2. COMBIGAN [Suspect]
     Indication: OCULAR HYPERTENSION
     Route: 047

REACTIONS (4)
  - BURNING SENSATION [None]
  - EYELID OEDEMA [None]
  - FACE OEDEMA [None]
  - PRURITUS [None]
